FAERS Safety Report 17095826 (Version 1)
Quarter: 2019Q4

REPORT INFORMATION
  Report Type: Spontaneous
  Country: US (occurrence: US)
  Receive Date: 20191201
  Receipt Date: 20191201
  Transmission Date: 20200122
  Serious: No
  Sender: FDA-Public Use
  Company Number: US-ELI_LILLY_AND_COMPANY-US201911002003

PATIENT
  Sex: Female

DRUGS (1)
  1. VERZENIO [Suspect]
     Active Substance: ABEMACICLIB
     Indication: BREAST CANCER METASTATIC
     Dosage: 150 MG, UNKNOWN
     Route: 065

REACTIONS (7)
  - Asthenia [Unknown]
  - Bone pain [Unknown]
  - Nausea [Recovering/Resolving]
  - Hot flush [Unknown]
  - Vomiting [Recovering/Resolving]
  - Swelling [Unknown]
  - Diarrhoea [Unknown]
